FAERS Safety Report 16458238 (Version 1)
Quarter: 2019Q2

REPORT INFORMATION
  Report Type: Spontaneous
  Country: US (occurrence: US)
  Receive Date: 20190620
  Receipt Date: 20190620
  Transmission Date: 20190711
  Serious: Yes (Hospitalization)
  Sender: FDA-Public Use
  Company Number: US-PFIZER INC-2019256492

PATIENT
  Age: 48 Year
  Sex: Female
  Weight: 67.13 kg

DRUGS (2)
  1. PROGESTERONE. [Concomitant]
     Active Substance: PROGESTERONE
     Dosage: UNK
  2. PREMARIN [Suspect]
     Active Substance: ESTROGENS, CONJUGATED
     Dosage: 0.45 MG, DAILY
     Route: 048

REACTIONS (4)
  - Vaginal haemorrhage [Unknown]
  - Tremor [Unknown]
  - Crying [Unknown]
  - Depression [Unknown]
